FAERS Safety Report 7240228-9 (Version None)
Quarter: 2011Q1

REPORT INFORMATION
  Report Type: 
  Country: None (occurrence: None)
  Receive Date: 20110124
  Receipt Date: 20110112
  Transmission Date: 20110831
  Serious: Yes (Other)
  Sender: FDA-Public Use
  Company Number: JP-CELGENEUS-087-21880-10121547

PATIENT
  Sex: Female

DRUGS (11)
  1. BAKTAR [Concomitant]
     Route: 048
  2. ARICEPT [Concomitant]
     Route: 048
  3. REVLIMID [Suspect]
     Indication: MYELODYSPLASTIC SYNDROME
     Route: 048
     Dates: start: 20101018, end: 20101030
  4. CALSLOT [Concomitant]
     Route: 048
  5. POSTERISAN [Concomitant]
     Route: 062
  6. MARZULENE-S [Concomitant]
     Route: 065
  7. REVLIMID [Suspect]
     Route: 048
     Dates: start: 20101215
  8. BLOPRESS [Concomitant]
     Route: 048
  9. ITRIZOLE [Concomitant]
     Route: 048
  10. REVLIMID [Suspect]
     Route: 048
     Dates: start: 20101115, end: 20101202
  11. ULCERLMIN [Concomitant]
     Route: 048

REACTIONS (2)
  - LIVER DISORDER [None]
  - NEUTROPHIL COUNT DECREASED [None]
